FAERS Safety Report 21545536 (Version 1)
Quarter: 2022Q4

REPORT INFORMATION
  Report Type: Spontaneous
  Country: US (occurrence: US)
  Receive Date: 20221103
  Receipt Date: 20221103
  Transmission Date: 20230113
  Serious: No
  Sender: FDA-Public Use
  Company Number: US-GSK-US2022153645

PATIENT
  Age: 57 Year
  Sex: Male

DRUGS (2)
  1. TRELEGY ELLIPTA [Suspect]
     Active Substance: FLUTICASONE FUROATE\UMECLIDINIUM BROMIDE\VILANTEROL TRIFENATATE
     Indication: Chronic obstructive pulmonary disease
     Dosage: UNK, QD 200MCG 1 INHALATION PER DAY
     Route: 055
  2. ALBUTEROL [Concomitant]
     Active Substance: ALBUTEROL
     Indication: Chronic obstructive pulmonary disease
     Dosage: -NORMAL IS 3-4 PUFFS PER DAY AS NEEDED,10-12 PUFFS PER DAY

REACTIONS (4)
  - Product dose omission issue [Not Recovered/Not Resolved]
  - Inappropriate schedule of product administration [Unknown]
  - Product use issue [Unknown]
  - Treatment noncompliance [Unknown]

NARRATIVE: CASE EVENT DATE: 20221011
